FAERS Safety Report 5655022-X (Version None)
Quarter: 2008Q1

REPORT INFORMATION
  Report Type: 
  Country: None (occurrence: None)
  Receive Date: 20080307
  Receipt Date: 20071022
  Transmission Date: 20080703
  Serious: No
  Sender: FDA-Public Use
  Company Number: A0689636A

PATIENT
  Age: 53 Year
  Sex: Female

DRUGS (3)
  1. REQUIP [Suspect]
     Indication: RESTLESS LEGS SYNDROME
     Dosage: 1MG AT NIGHT
     Route: 048
     Dates: start: 20070628
  2. VITAMIN [Concomitant]
  3. UNSPECIFIED MEDICATION [Concomitant]

REACTIONS (2)
  - HYPERSENSITIVITY [None]
  - RASH GENERALISED [None]
